FAERS Safety Report 19450798 (Version 1)
Quarter: 2021Q2

REPORT INFORMATION
  Report Type: Report from Study
  Country: RO (occurrence: RO)
  Receive Date: 20210622
  Receipt Date: 20210622
  Transmission Date: 20210717
  Serious: Yes (Other)
  Sender: FDA-Public Use
  Company Number: RO-CELLTRION INC.-2020RO022891

PATIENT

DRUGS (9)
  1. CYCLOPHOSPHAMIDE. [Suspect]
     Active Substance: CYCLOPHOSPHAMIDE
     Indication: BREAST CANCER METASTATIC
     Dosage: 1200 MG, Q3W (EVERY 3 WEEKS)
     Route: 042
     Dates: start: 20180807, end: 20181015
  2. EPIRUBICIN [Suspect]
     Active Substance: EPIRUBICIN
     Indication: BREAST CANCER METASTATIC
     Dosage: 100 MG, EVERY 3 WEEKS
     Route: 042
     Dates: start: 20190905
  3. TRASTUZUMAB (UNKNOWN) [Suspect]
     Active Substance: TRASTUZUMAB
     Indication: BREAST CANCER METASTATIC
     Dosage: 600 MG, Q3W (EVERY 3 WEEKS)
     Route: 041
     Dates: start: 20181106
  4. CYCLOPHOSPHAMIDE. [Suspect]
     Active Substance: CYCLOPHOSPHAMIDE
     Dosage: 600 MG, Q3W ? EVERY 3 WEEKS
     Route: 042
     Dates: start: 20190905
  5. DOCETAXEL. [Suspect]
     Active Substance: DOCETAXEL
     Dosage: 75 MG, (Q3W ? EVERY 3 WEEKS)
     Route: 042
     Dates: start: 20190612, end: 20190814
  6. DOCETAXEL. [Suspect]
     Active Substance: DOCETAXEL
     Indication: BREAST CANCER METASTATIC
     Dosage: 150 MG, Q3W (EVERY 3 WEEKS)
     Route: 042
     Dates: start: 20181106, end: 20190208
  7. TRASTUZUMAB (UNKNOWN) [Suspect]
     Active Substance: TRASTUZUMAB
     Dosage: 6 MG, Q3W ? EVERY 3 WEEKS
     Route: 041
     Dates: start: 20190612, end: 20190814
  8. ANASTROZOLE. [Suspect]
     Active Substance: ANASTROZOLE
     Indication: BREAST CANCER METASTATIC
     Dosage: 1 MG, OD (ONCE DAILY)
     Route: 048
     Dates: start: 20190513
  9. DOXORUBICIN [Suspect]
     Active Substance: DOXORUBICIN
     Indication: BREAST CANCER METASTATIC
     Dosage: 120 MG, Q3W (EVERY 3 WEEKS)
     Route: 042
     Dates: start: 20180807, end: 20181015

REACTIONS (2)
  - Off label use [Unknown]
  - Cardiotoxicity [Recovered/Resolved]

NARRATIVE: CASE EVENT DATE: 20190510
